FAERS Safety Report 7382300 (Version 9)
Quarter: 2022Q2

REPORT INFORMATION
  Report Type: Spontaneous
  Country: FI (occurrence: FI)
  Receive Date: 20100510
  Receipt Date: 20220607
  Transmission Date: 20220720
  Serious: Yes (Life-Threatening, Hospitalization, Disabling, Other)
  Sender: FDA-Public Use
  Company Number: FI-PFIZER INC-2007078093

PATIENT
  Age: 46 Year
  Sex: Male

DRUGS (18)
  1. VARENICLINE TARTRATE [Interacting]
     Active Substance: VARENICLINE TARTRATE
     Indication: Nicotine dependence
     Dosage: 0.5 MG, 1X/DAY
     Route: 048
     Dates: start: 20070702, end: 20070704
  2. VARENICLINE TARTRATE [Interacting]
     Active Substance: VARENICLINE TARTRATE
     Dosage: 0.5 MG, 2X/DAY
     Route: 048
     Dates: start: 20070705, end: 20070708
  3. VARENICLINE TARTRATE [Interacting]
     Active Substance: VARENICLINE TARTRATE
     Dosage: 1 MG, 2X/DAY
     Route: 048
     Dates: start: 20070709, end: 20071108
  4. ZOLOFT [Suspect]
     Active Substance: SERTRALINE HYDROCHLORIDE
     Dosage: UNK
  5. AMOXICILLIN TRIHYDRATE [Interacting]
     Active Substance: AMOXICILLIN
     Indication: Sinusitis
     Dosage: UNK
     Route: 048
     Dates: start: 20071105, end: 20071108
  6. AMOXICILLIN TRIHYDRATE [Interacting]
     Active Substance: AMOXICILLIN
     Indication: Influenza
  7. PHENYLPROPANOLAMINE [Interacting]
     Active Substance: PHENYLPROPANOLAMINE
     Dosage: 100 MG, UNK
     Route: 048
     Dates: start: 20071105, end: 200711
  8. NICORETTE [Suspect]
     Active Substance: NICOTINE
     Indication: Smoking cessation therapy
     Dosage: 4 MG, UNK
     Dates: start: 200603, end: 2007
  9. NICORETTE [Suspect]
     Active Substance: NICOTINE
     Dosage: 2 MG
  10. NICOTINE [Suspect]
     Active Substance: NICOTINE
     Dosage: UNK
     Dates: start: 200603
  11. SERTRALINE [Suspect]
     Active Substance: SERTRALINE HYDROCHLORIDE
     Dosage: 50MG, 1/2 TABLET DAILY
     Dates: start: 20090305
  12. CIPRALEX [Suspect]
     Active Substance: ESCITALOPRAM OXALATE
     Dosage: UNK
     Dates: start: 20071218
  13. METOCLOPRAMIDE [Suspect]
     Active Substance: METOCLOPRAMIDE
  14. AZITHROMYCIN [Concomitant]
     Active Substance: AZITHROMYCIN
     Indication: Influenza
     Dosage: 3
     Route: 048
     Dates: start: 20071024, end: 200710
  15. DOXYCYCLINE [Concomitant]
     Active Substance: DOXYCYCLINE
     Indication: Oropharyngeal pain
     Dosage: UNK
     Route: 048
     Dates: start: 20071001, end: 2007
  16. CLARITHROMYCIN [Concomitant]
     Active Substance: CLARITHROMYCIN
     Indication: Acute sinusitis
     Dosage: TEN DAYS COURSE
     Route: 048
     Dates: start: 20071111, end: 200711
  17. HAVRIX [Concomitant]
     Active Substance: HEPATITIS A VIRUS STRAIN HM175 ANTIGEN (FORMALDEHYDE INACTIVATED)
     Dosage: UNK
     Route: 030
     Dates: start: 20070629, end: 20070629
  18. TOCLASE [Concomitant]
     Active Substance: PENTOXYVERINE
     Dosage: UNK
     Dates: start: 20071001

REACTIONS (70)
  - Seizure [Unknown]
  - Cerebrovascular accident [Unknown]
  - Myocardial infarction [Unknown]
  - Restlessness [Unknown]
  - Olfacto genital dysplasia [Unknown]
  - Vasodilatation [Recovered/Resolved]
  - Adrenal insufficiency [Unknown]
  - Drug interaction [Recovered/Resolved]
  - Withdrawal syndrome [Recovered/Resolved]
  - Agitation [Unknown]
  - Aggression [Unknown]
  - Obesity [Unknown]
  - Blood glucose increased [Unknown]
  - Depression [Not Recovered/Not Resolved]
  - Hallucination [Unknown]
  - Confusional state [Unknown]
  - Dyspnoea [Recovered/Resolved]
  - Palpitations [Recovered/Resolved]
  - Swelling [Not Recovered/Not Resolved]
  - Mood swings [Unknown]
  - Hyposmia [Unknown]
  - Acute sinusitis [Recovered/Resolved]
  - Hepatic steatosis [Unknown]
  - Lower respiratory tract infection [Unknown]
  - Hypersensitivity [Unknown]
  - Hypothyroidism [Unknown]
  - Adjustment disorder with mixed anxiety and depressed mood [Unknown]
  - Memory impairment [Unknown]
  - Loss of personal independence in daily activities [Unknown]
  - Vertigo [Unknown]
  - Parkinson^s disease [Unknown]
  - Craniocerebral injury [Unknown]
  - Neurotoxicity [Unknown]
  - Drug dependence [Unknown]
  - Poisoning [Recovered/Resolved with Sequelae]
  - Erectile dysfunction [Recovered/Resolved]
  - Irritability [Recovered/Resolved]
  - Nightmare [Unknown]
  - Anxiety [Recovering/Resolving]
  - Increased appetite [Unknown]
  - Sleep disorder [Recovering/Resolving]
  - Tinnitus [Not Recovered/Not Resolved]
  - Panic reaction [Unknown]
  - Infection [Recovered/Resolved]
  - Sense of oppression [Unknown]
  - Weight increased [Not Recovered/Not Resolved]
  - Fatigue [Recovering/Resolving]
  - Euphoric mood [Recovered/Resolved]
  - Dizziness [Unknown]
  - Musculoskeletal discomfort [Not Recovered/Not Resolved]
  - Blood cholesterol increased [Unknown]
  - Influenza [Unknown]
  - Upper respiratory tract infection [Unknown]
  - Abdominal discomfort [Recovered/Resolved]
  - Nausea [Recovered/Resolved]
  - Fear [Unknown]
  - Feeling abnormal [Unknown]
  - Personality change [Unknown]
  - Loss of libido [Not Recovered/Not Resolved]
  - Somnolence [Recovered/Resolved]
  - Snoring [Not Recovered/Not Resolved]
  - Hyperhidrosis [Recovered/Resolved]
  - Feeling cold [Recovered/Resolved]
  - Gastric disorder [Recovering/Resolving]
  - Tremor [Unknown]
  - Hyporeflexia [Recovered/Resolved]
  - Hypopituitarism [Unknown]
  - Secondary hypogonadism [Unknown]
  - Akathisia [Unknown]
  - Dyskinesia [Unknown]

NARRATIVE: CASE EVENT DATE: 20060101
